FAERS Safety Report 12729384 (Version 2)
Quarter: 2016Q4

REPORT INFORMATION
  Report Type: Spontaneous
  Country: US (occurrence: US)
  Receive Date: 20160909
  Receipt Date: 20161018
  Transmission Date: 20170207
  Serious: No
  Sender: FDA-Public Use
  Company Number: US-BAYER-2016-174644

PATIENT
  Sex: Female

DRUGS (2)
  1. CLIMARA PRO [Suspect]
     Active Substance: ESTRADIOL\LEVONORGESTREL
     Indication: MENOPAUSE
     Dosage: 0.045 MG/DAY ESTRADIOL AND 0.015 MG/DAY LEVONORGESTREL
     Route: 062
     Dates: start: 20160829
  2. CLIMARA PRO [Suspect]
     Active Substance: ESTRADIOL\LEVONORGESTREL
     Indication: HOT FLUSH

REACTIONS (4)
  - Product adhesion issue [None]
  - Drug ineffective [None]
  - Hyperhidrosis [Not Recovered/Not Resolved]
  - Product packaging issue [None]

NARRATIVE: CASE EVENT DATE: 2016
